FAERS Safety Report 4332080-6 (Version None)
Quarter: 2004Q1

REPORT INFORMATION
  Report Type: 
  Country: None (occurrence: None)
  Receive Date: 20040331
  Receipt Date: 20040316
  Transmission Date: 20041129
  Serious: Yes (Death)
  Sender: FDA-Public Use
  Company Number: CIP04000540

PATIENT
  Age: 47 Year

DRUGS (1)
  1. ASACOL [Suspect]
     Indication: INFLAMMATORY BOWEL DISEASE

REACTIONS (7)
  - DIALYSIS [None]
  - GLOMERULONEPHRITIS FOCAL [None]
  - GLOMERULONEPHRITIS MINIMAL LESION [None]
  - NEPHROPATHY TOXIC [None]
  - RENAL FAILURE CHRONIC [None]
  - RENAL IMPAIRMENT [None]
  - TUBULOINTERSTITIAL NEPHRITIS [None]
